FAERS Safety Report 8600976-2 (Version None)
Quarter: 2012Q3

REPORT INFORMATION
  Report Type: 
  Country: None (occurrence: None)
  Receive Date: 20120803
  Receipt Date: 20120720
  Transmission Date: 20120928
  Serious: Yes (Hospitalization)
  Sender: FDA-Public Use
  Company Number: 2012MA009280

PATIENT
  Age: 88 Year
  Sex: Female

DRUGS (10)
  1. LEVOTHYROXINE SODIUM [Concomitant]
  2. MIRTAZAPINE [Suspect]
     Dosage: 15 MG;QD;PO
     Route: 048
     Dates: start: 20120704, end: 20120707
  3. FLUOXETINE HYDROCHLORIDE [Concomitant]
     Dosage: 20 MG;QD;PO
     Route: 048
     Dates: end: 20120703
  4. ADCAL-D3 [Concomitant]
  5. TRIMETHOPRIM [Suspect]
     Indication: URINARY TRACT INFECTION
     Dosage: 200 MG;BID;PO
     Route: 048
     Dates: start: 20120704, end: 20120707
  6. SENNA [Concomitant]
  7. ACETYLSALICYLIC ACID SRT [Concomitant]
  8. SIMVASTATIN [Concomitant]
  9. FOLIC ACID [Concomitant]
  10. ACETAMINOPHEN [Concomitant]

REACTIONS (3)
  - GENERAL PHYSICAL HEALTH DETERIORATION [None]
  - NAUSEA [None]
  - VOMITING [None]
